FAERS Safety Report 6924316-X (Version None)
Quarter: 2010Q3

REPORT INFORMATION
  Report Type: 
  Country: None (occurrence: None)
  Receive Date: 20100811
  Receipt Date: 20100811
  Transmission Date: 20110219
  Serious: Yes (Other)
  Sender: FDA-Public Use
  Company Number: None

PATIENT
  Age: 32 Year
  Sex: Female
  Weight: 99.7913 kg

DRUGS (1)
  1. XYZAL [Suspect]
     Indication: MULTIPLE ALLERGIES
     Dosage: PO
     Route: 048
     Dates: start: 20080401, end: 20100207

REACTIONS (9)
  - EAR DISCOMFORT [None]
  - EAR PAIN [None]
  - MALAISE [None]
  - PRURITUS GENERALISED [None]
  - SENSITIVITY OF TEETH [None]
  - SHOCK [None]
  - SINUS HEADACHE [None]
  - URTICARIA [None]
  - VERTIGO [None]
